FAERS Safety Report 20797372 (Version 1)
Quarter: 2022Q2

REPORT INFORMATION
  Report Type: Spontaneous
  Country: CN (occurrence: CN)
  Receive Date: 20220506
  Receipt Date: 20220506
  Transmission Date: 20220721
  Serious: Yes (Other)
  Sender: FDA-Public Use
  Company Number: CN-009507513-2205CHN001433

PATIENT
  Age: 62 Year
  Sex: Female
  Weight: 40 kg

DRUGS (3)
  1. KEYTRUDA [Suspect]
     Active Substance: PEMBROLIZUMAB
     Indication: Chemotherapy
     Dosage: 200 MG, IVGTT D1; Q3W
     Route: 041
     Dates: start: 20220423, end: 20220423
  2. PACLITAXEL [Suspect]
     Active Substance: PACLITAXEL
     Indication: Chemotherapy
     Dosage: 70 MG, D1, D8; Q3W
     Route: 033
     Dates: start: 20220423, end: 20220423
  3. GIMERACIL\OTERACIL\TEGAFUR [Suspect]
     Active Substance: GIMERACIL\OTERACIL\TEGAFUR
     Indication: Chemotherapy
     Dosage: 40 MG BID D1-14; Q3W
     Route: 048
     Dates: start: 20220423, end: 20220427

REACTIONS (3)
  - Myelosuppression [Unknown]
  - White blood cell count decreased [Recovering/Resolving]
  - Anaemia [Recovering/Resolving]

NARRATIVE: CASE EVENT DATE: 20220425
